FAERS Safety Report 4819313-4 (Version None)
Quarter: 2005Q4

REPORT INFORMATION
  Report Type: 
  Country: None (occurrence: None)
  Receive Date: 20051103
  Receipt Date: 20051025
  Transmission Date: 20060501
  Serious: Yes (Hospitalization)
  Sender: FDA-Public Use
  Company Number: FR-ROCHE-422426

PATIENT
  Age: 74 Year
  Sex: Female

DRUGS (7)
  1. RIVOTRIL [Suspect]
     Indication: DRUG USE FOR UNKNOWN INDICATION
     Route: 048
  2. DURAGESIC-100 [Suspect]
     Indication: DRUG USE FOR UNKNOWN INDICATION
     Route: 050
     Dates: end: 20050829
  3. OROCAL [Concomitant]
  4. FOSAMAX [Concomitant]
  5. CORTANCYL [Concomitant]
     Route: 048
  6. KETOPROFEN [Concomitant]
     Route: 048
  7. NEXIUM [Concomitant]
     Dosage: DOSAGE REGIMEN: ONE DOSE EVERY DAY.
     Route: 048

REACTIONS (7)
  - AGGRESSION [None]
  - CONFUSIONAL STATE [None]
  - DISORIENTATION [None]
  - HYPONATRAEMIA [None]
  - INCOHERENT [None]
  - INFLAMMATION [None]
  - OVERDOSE [None]
